FAERS Safety Report 16872190 (Version 1)
Quarter: 2019Q4

REPORT INFORMATION
  Report Type: Spontaneous
  Country: AT (occurrence: AT)
  Receive Date: 20191001
  Receipt Date: 20191001
  Transmission Date: 20200122
  Serious: Yes (Other)
  Sender: FDA-Public Use
  Company Number: AT-TEVA-2019-AT-1114728

PATIENT
  Age: 47 Year
  Sex: Male

DRUGS (2)
  1. NAPROBENE 500MG - FILMTABLETTEN [Suspect]
     Active Substance: NAPROXEN
     Route: 048
     Dates: start: 20190811, end: 20190814
  2. VOLTAREN EMULGEL (DICLOFENAC) [Concomitant]
     Active Substance: DICLOFENAC

REACTIONS (3)
  - Genital erythema [Recovered/Resolved]
  - Pain [Recovered/Resolved]
  - Type IV hypersensitivity reaction [Recovered/Resolved]

NARRATIVE: CASE EVENT DATE: 20190814
